FAERS Safety Report 4286306-8 (Version None)
Quarter: 2004Q1

REPORT INFORMATION
  Report Type: 
  Country: None (occurrence: None)
  Receive Date: 20040129
  Receipt Date: 20030326
  Transmission Date: 20041129
  Serious: Yes (Hospitalization)
  Sender: FDA-Public Use
  Company Number: A001-002-005568

PATIENT
  Age: 80 Year
  Sex: Female
  Weight: 58 kg

DRUGS (5)
  1. ARICEPT [Suspect]
     Indication: AMNESIA
     Dosage: 5 MG, 1 IN 1 D; ORAL
     Route: 048
     Dates: start: 20030213, end: 20030310
  2. ARICEPT [Suspect]
     Indication: DEMENTIA
     Dosage: 5 MG, 1 IN 1 D; ORAL
     Route: 048
     Dates: start: 20030213, end: 20030310
  3. XALATAN [Concomitant]
  4. ASPIRIN [Concomitant]
  5. CENTRUM SILVER (CENTRUM SILVER) [Concomitant]

REACTIONS (3)
  - CONVULSION [None]
  - FATIGUE [None]
  - HEADACHE [None]
